FAERS Safety Report 4918423-0 (Version None)
Quarter: 2006Q1

REPORT INFORMATION
  Report Type: 
  Country: None (occurrence: None)
  Receive Date: 20060222
  Receipt Date: 20040213
  Transmission Date: 20060701
  Serious: Yes (Hospitalization)
  Sender: FDA-Public Use
  Company Number: JP-BOEHRINGER INGELHEIM PHARMACEUTICALS, INC.-2004-BP-01158NB

PATIENT
  Sex: Male
  Weight: 59 kg

DRUGS (2)
  1. MICARDIS [Suspect]
     Indication: HYPERTENSION
     Route: 048
     Dates: start: 20031017, end: 20040128
  2. PREDONINE [Concomitant]
     Indication: CRYPTOGENIC ORGANIZING PNEUMONIA
     Route: 048

REACTIONS (2)
  - CRYPTOGENIC ORGANIZING PNEUMONIA [None]
  - INTERSTITIAL LUNG DISEASE [None]
